FAERS Safety Report 6542479-5 (Version None)
Quarter: 2010Q1

REPORT INFORMATION
  Report Type: 
  Country: None (occurrence: None)
  Receive Date: 20100119
  Receipt Date: 20100114
  Transmission Date: 20100710
  Serious: Yes (Disabling)
  Sender: FDA-Public Use
  Company Number: US-ELI_LILLY_AND_COMPANY-US201001003052

PATIENT

DRUGS (2)
  1. HUMALOG MIX 75/25 [Suspect]
     Dosage: 80 U, EACH MORNING
  2. HUMALOG MIX 75/25 [Suspect]
     Dosage: 20 U, EACH EVENING

REACTIONS (1)
  - DISABILITY [None]
